FAERS Safety Report 7524870-3 (Version None)
Quarter: 2011Q2

REPORT INFORMATION
  Report Type: 
  Country: None (occurrence: None)
  Receive Date: 20110606
  Receipt Date: 20110523
  Transmission Date: 20111010
  Serious: Yes (Other)
  Sender: FDA-Public Use
  Company Number: US-ELI_LILLY_AND_COMPANY-US201104005783

PATIENT
  Age: 86 Year
  Sex: Female
  Weight: 72.109 kg

DRUGS (7)
  1. METOPROLOL TARTRATE [Concomitant]
  2. TYLENOL                                 /SCH/ [Concomitant]
  3. FORTEO [Suspect]
     Indication: OSTEOPOROSIS
     Dosage: 20 UG, QD
     Route: 058
     Dates: start: 20110101
  4. FORTEO [Suspect]
     Dosage: 20 UG, QD
     Route: 058
  5. OMEPRAZOLE [Concomitant]
  6. ERGOCALCIFEROL [Concomitant]
     Dosage: UNK, WEEKLY (1/W)
  7. AGGRENOX [Concomitant]

REACTIONS (1)
  - ROTATOR CUFF SYNDROME [None]
